FAERS Safety Report 15143577 (Version 1)
Quarter: 2018Q3

REPORT INFORMATION
  Report Type: Report from Study
  Country: BR (occurrence: BR)
  Receive Date: 20180713
  Receipt Date: 20180713
  Transmission Date: 20181010
  Serious: Yes (Other)
  Sender: FDA-Public Use
  Company Number: BR-JNJFOC-20180706004

PATIENT
  Sex: Female

DRUGS (5)
  1. LOSARTAN. [Concomitant]
     Active Substance: LOSARTAN
     Route: 065
  2. STELARA [Suspect]
     Active Substance: USTEKINUMAB
     Indication: PSORIASIS
     Route: 058
     Dates: start: 20170808
  3. VITAMIN B?6 [Concomitant]
     Active Substance: PYRIDOXINE
     Route: 065
  4. PANTOPRAZOLE [Concomitant]
     Active Substance: PANTOPRAZOLE
     Route: 065
  5. DOLAMIN FLEX [Concomitant]
     Active Substance: CLONIXIN\CYCLOBENZAPRINE
     Route: 065

REACTIONS (6)
  - Skin papilloma [Unknown]
  - Rhinitis allergic [Unknown]
  - Back injury [Recovering/Resolving]
  - Skin lesion [Recovering/Resolving]
  - Hepatic infection bacterial [Unknown]
  - Platelet count decreased [Unknown]
